FAERS Safety Report 5597502-1 (Version None)
Quarter: 2008Q1

REPORT INFORMATION
  Report Type: 
  Country: None (occurrence: None)
  Receive Date: 20080121
  Receipt Date: 20080114
  Transmission Date: 20080703
  Serious: Yes (Hospitalization)
  Sender: FDA-Public Use
  Company Number: PHRM2008FR00592

PATIENT
  Age: 85 Year
  Sex: Female
  Weight: 70 kg

DRUGS (10)
  1. TEGRETOL [Suspect]
     Indication: EPILEPSY
     Dosage: 100 MG, QD
     Route: 048
     Dates: end: 20070829
  2. PROZAC [Suspect]
     Indication: DEPRESSION
     Dosage: 10 MG, QD
     Route: 048
     Dates: end: 20070829
  3. HYTACAND [Suspect]
     Indication: HYPERTENSION
     Dosage: 1 DF, QD
     Route: 048
     Dates: end: 20070829
  4. LASIX [Suspect]
     Indication: HYPERTENSION
     Route: 048
     Dates: end: 20070829
  5. DOGMATIL [Concomitant]
     Indication: ANXIETY
     Route: 048
     Dates: end: 20070828
  6. KARDEGIC [Concomitant]
     Indication: PROPHYLAXIS
     Dosage: 75 MG, QD
     Route: 048
     Dates: end: 20070828
  7. SERESTA [Concomitant]
     Route: 048
  8. LOXEN [Concomitant]
     Dosage: 50 MG, BID
     Route: 048
  9. CACIT D3 [Concomitant]
     Route: 048
  10. DIGOXIN [Concomitant]
     Route: 048
     Dates: start: 20070811

REACTIONS (5)
  - ATRIAL FIBRILLATION [None]
  - DRUG INTERACTION [None]
  - HYPONATRAEMIA [None]
  - NAUSEA [None]
  - PALPITATIONS [None]
